FAERS Safety Report 19035825 (Version 1)
Quarter: 2021Q1

REPORT INFORMATION
  Report Type: Spontaneous
  Country: GB (occurrence: GB)
  Receive Date: 20210321
  Receipt Date: 20210321
  Transmission Date: 20210420
  Serious: Yes (Other)
  Sender: FDA-Public Use
  Company Number: GB-TEVA-2021-GB-1890961

PATIENT
  Age: 57 Year
  Sex: Female

DRUGS (2)
  1. LEVOTHYROXINE. [Suspect]
     Active Substance: LEVOTHYROXINE
     Indication: PRODUCT USED FOR UNKNOWN INDICATION
     Dosage: 50 MICROGRAM DAILY;
     Route: 048
     Dates: start: 20210208, end: 20210224
  2. LEVOTHYROXINE. [Concomitant]
     Active Substance: LEVOTHYROXINE
     Dosage: 25MCG

REACTIONS (11)
  - Emotional disorder [Recovering/Resolving]
  - Pain in extremity [Recovering/Resolving]
  - Headache [Recovering/Resolving]
  - Fatigue [Recovering/Resolving]
  - Product packaging issue [Unknown]
  - Disturbance in attention [Recovering/Resolving]
  - Tremor [Recovering/Resolving]
  - Abnormal behaviour [Recovering/Resolving]
  - Palpitations [Recovering/Resolving]
  - Incorrect dose administered [Unknown]
  - Sleep disorder [Recovering/Resolving]
